FAERS Safety Report 22588678 (Version 2)
Quarter: 2023Q2

REPORT INFORMATION
  Report Type: Report from Study
  Country: US (occurrence: None)
  Receive Date: 20230612
  Receipt Date: 20230619
  Transmission Date: 20230721
  Serious: Yes (Life-Threatening, Hospitalization)
  Sender: FDA-Public Use
  Company Number: US-ROCHE-2416502

PATIENT
  Age: 54 Year
  Sex: Male
  Weight: 87.1 kg

DRUGS (96)
  1. MOSUNETUZUMAB [Suspect]
     Active Substance: MOSUNETUZUMAB
     Indication: B-cell lymphoma
     Dosage: DATE OF MOST RECENT DOSE (8.72MG) OF THE MOSUNETUZUMAB PRIOR TO THE ONSET OF THE FIRST EPISODE OF CY
     Route: 042
     Dates: start: 20190916
  2. TOCILIZUMAB [Suspect]
     Active Substance: TOCILIZUMAB
     Indication: Cytokine release syndrome
     Dosage: ON 17/SEP/2019, AT 1.28 HRS.?THE DATE OF MOST RECENT DOSE OF TOCILIZUMAB PRIOR TO AE ONSET: 11/DEC/2
     Route: 042
     Dates: start: 20191009
  3. ACYCLOVIR [Concomitant]
     Active Substance: ACYCLOVIR
     Indication: Prophylaxis
     Route: 048
     Dates: start: 20190904
  4. ALLOPURINOL [Concomitant]
     Active Substance: ALLOPURINOL
     Indication: Prophylaxis
     Route: 048
     Dates: start: 20190913, end: 20191024
  5. BENZONATATE [Concomitant]
     Active Substance: BENZONATATE
     Indication: Cough
     Route: 048
     Dates: start: 20190924, end: 20191028
  6. CEFEPIME [Concomitant]
     Active Substance: CEFEPIME HYDROCHLORIDE
     Indication: Infection prophylaxis
     Route: 042
     Dates: start: 20190929, end: 20190929
  7. CEFEPIME [Concomitant]
     Active Substance: CEFEPIME HYDROCHLORIDE
     Route: 042
     Dates: start: 20190929, end: 20190929
  8. CEFEPIME [Concomitant]
     Active Substance: CEFEPIME HYDROCHLORIDE
     Route: 042
     Dates: start: 20191008, end: 20191011
  9. DIPHENHYDRAMINE [Concomitant]
     Active Substance: DIPHENHYDRAMINE
     Route: 048
     Dates: start: 20190923, end: 20190923
  10. DIPHENHYDRAMINE [Concomitant]
     Active Substance: DIPHENHYDRAMINE
     Route: 042
     Dates: start: 20190916, end: 20190916
  11. DIPHENHYDRAMINE [Concomitant]
     Active Substance: DIPHENHYDRAMINE
     Route: 048
     Dates: start: 20190918, end: 20190918
  12. DIPHENHYDRAMINE [Concomitant]
     Active Substance: DIPHENHYDRAMINE
     Route: 048
     Dates: start: 20190916, end: 20190916
  13. DIPHENHYDRAMINE [Concomitant]
     Active Substance: DIPHENHYDRAMINE
     Route: 048
     Dates: start: 20190929, end: 20191014
  14. DIPHENHYDRAMINE [Concomitant]
     Active Substance: DIPHENHYDRAMINE
     Route: 042
     Dates: start: 20191008, end: 20191013
  15. DIPHENHYDRAMINE [Concomitant]
     Active Substance: DIPHENHYDRAMINE
     Route: 048
     Dates: start: 20191120, end: 20191120
  16. DIPHENHYDRAMINE [Concomitant]
     Active Substance: DIPHENHYDRAMINE
     Route: 048
     Dates: start: 20191204, end: 20191204
  17. DIPHENHYDRAMINE [Concomitant]
     Active Substance: DIPHENHYDRAMINE
     Route: 048
     Dates: start: 20191211, end: 20191211
  18. DIPHENHYDRAMINE [Concomitant]
     Active Substance: DIPHENHYDRAMINE
     Route: 048
     Dates: start: 20191218, end: 20191218
  19. DOCUSATE SODIUM [Concomitant]
     Active Substance: DOCUSATE SODIUM
     Indication: Constipation
     Route: 048
     Dates: start: 20190929, end: 20191028
  20. DEXAMETHASONE [Concomitant]
     Active Substance: DEXAMETHASONE
     Route: 042
     Dates: start: 20190916, end: 20190916
  21. DEXAMETHASONE [Concomitant]
     Active Substance: DEXAMETHASONE
     Route: 042
     Dates: start: 20190923, end: 20190923
  22. DEXAMETHASONE [Concomitant]
     Active Substance: DEXAMETHASONE
     Route: 042
     Dates: start: 20191011, end: 20191011
  23. DEXAMETHASONE [Concomitant]
     Active Substance: DEXAMETHASONE
     Route: 042
     Dates: start: 20191009, end: 20191011
  24. DEXAMETHASONE [Concomitant]
     Active Substance: DEXAMETHASONE
     Route: 042
     Dates: start: 20191012, end: 20191012
  25. DEXAMETHASONE [Concomitant]
     Active Substance: DEXAMETHASONE
     Route: 042
     Dates: start: 20191013, end: 20191013
  26. DEXAMETHASONE [Concomitant]
     Active Substance: DEXAMETHASONE
     Route: 042
     Dates: start: 20191120, end: 20191120
  27. DEXAMETHASONE [Concomitant]
     Active Substance: DEXAMETHASONE
     Route: 042
     Dates: start: 20191204, end: 20191204
  28. DEXAMETHASONE [Concomitant]
     Active Substance: DEXAMETHASONE
     Route: 042
     Dates: start: 20191211, end: 20191211
  29. DEXAMETHASONE [Concomitant]
     Active Substance: DEXAMETHASONE
     Route: 042
     Dates: start: 20191218, end: 20191218
  30. DEXAMETHASONE [Concomitant]
     Active Substance: DEXAMETHASONE
     Route: 042
     Dates: start: 20191008, end: 20191008
  31. LACTATED RINGERS SOLUTION [Concomitant]
     Active Substance: CALCIUM CHLORIDE\POTASSIUM CHLORIDE\SODIUM CHLORIDE\SODIUM LACTATE
     Route: 042
     Dates: start: 20190916, end: 20190917
  32. LACTATED RINGERS SOLUTION [Concomitant]
     Active Substance: CALCIUM CHLORIDE\POTASSIUM CHLORIDE\SODIUM CHLORIDE\SODIUM LACTATE
     Route: 042
     Dates: start: 20190929, end: 20190929
  33. LACTATED RINGERS SOLUTION [Concomitant]
     Active Substance: CALCIUM CHLORIDE\POTASSIUM CHLORIDE\SODIUM CHLORIDE\SODIUM LACTATE
     Route: 042
     Dates: start: 20191014, end: 20191014
  34. LIDOCAINE\PRILOCAINE [Concomitant]
     Active Substance: LIDOCAINE\PRILOCAINE
     Indication: Haemorrhoids
     Route: 061
     Dates: start: 20190628
  35. LORAZEPAM [Concomitant]
     Active Substance: LORAZEPAM
     Indication: Anxiety
     Route: 048
     Dates: start: 20190604, end: 20190929
  36. LORAZEPAM [Concomitant]
     Active Substance: LORAZEPAM
     Route: 042
     Dates: start: 20191008, end: 20191008
  37. POTASSIUM PHOSPHATE MONOBASIC;SODIUM PHOSPHATE [Concomitant]
     Indication: Hypophosphataemia
     Route: 048
     Dates: start: 20190913, end: 20190929
  38. SENNA [Concomitant]
     Active Substance: SENNA LEAF\SENNOSIDES\SENNOSIDES A AND B
     Indication: Constipation
     Route: 048
     Dates: start: 20190929
  39. SODIUM CHLORIDE [Concomitant]
     Active Substance: SODIUM CHLORIDE
     Route: 045
     Dates: start: 20190917, end: 20190917
  40. SODIUM CHLORIDE [Concomitant]
     Active Substance: SODIUM CHLORIDE
     Route: 042
     Dates: start: 20190923, end: 20190925
  41. TOCILIZUMAB [Concomitant]
     Active Substance: TOCILIZUMAB
     Indication: Cytokine release syndrome
     Route: 042
     Dates: start: 20191009, end: 20191009
  42. POTASSIUM CHLORIDE [Concomitant]
     Active Substance: POTASSIUM CHLORIDE
     Dosage: DOSE 20 OTHER
     Route: 048
     Dates: start: 20191005, end: 20191028
  43. FUROSEMIDE [Concomitant]
     Active Substance: FUROSEMIDE
     Indication: Tumour lysis syndrome
     Route: 042
     Dates: start: 20191009, end: 20191027
  44. LIDOCAINE [Concomitant]
     Active Substance: LIDOCAINE
     Indication: Pain
     Route: 042
     Dates: start: 20191009, end: 20191026
  45. MAGNESIUM SULFATE [Concomitant]
     Active Substance: MAGNESIUM SULFATE
     Route: 042
     Dates: start: 20191009, end: 20191025
  46. LANSOPRAZOLE [Concomitant]
     Active Substance: LANSOPRAZOLE
     Route: 048
     Dates: start: 20191011, end: 20191028
  47. LANSOPRAZOLE [Concomitant]
     Active Substance: LANSOPRAZOLE
     Route: 048
     Dates: start: 20191011, end: 20191028
  48. PANTOPRAZOLE [Concomitant]
     Active Substance: PANTOPRAZOLE
     Route: 042
     Dates: start: 20191009, end: 20191019
  49. BISACODYL [Concomitant]
     Active Substance: BISACODYL
     Indication: Constipation
     Route: 048
     Dates: start: 20191011, end: 20191011
  50. ONDANSETRON [Concomitant]
     Active Substance: ONDANSETRON
     Indication: Nausea
     Route: 042
     Dates: start: 20191010, end: 20191011
  51. DASATINIB [Concomitant]
     Active Substance: DASATINIB
     Route: 048
     Dates: start: 20191009, end: 20191009
  52. CALCIUM CHLORIDE [Concomitant]
     Active Substance: CALCIUM CHLORIDE
     Route: 042
     Dates: start: 20191009, end: 20191013
  53. EPINEPHRINE [Concomitant]
     Active Substance: EPINEPHRINE
     Route: 042
     Dates: start: 20191008, end: 20191011
  54. PROPOFOL [Concomitant]
     Active Substance: PROPOFOL
     Route: 042
     Dates: start: 20191009, end: 20191010
  55. DEXTROSE [Concomitant]
     Active Substance: DEXTROSE\DEXTROSE MONOHYDRATE
     Route: 042
     Dates: start: 20191009, end: 20191009
  56. DEXTROSE [Concomitant]
     Active Substance: DEXTROSE\DEXTROSE MONOHYDRATE
     Route: 042
     Dates: start: 20191013, end: 20191014
  57. LACTULOSE [Concomitant]
     Active Substance: LACTULOSE
     Route: 048
     Dates: start: 20191009, end: 20191012
  58. CALCIUM GLUCONATE [Concomitant]
     Active Substance: CALCIUM GLUCONATE
     Route: 042
     Dates: start: 20191009, end: 20191009
  59. NOREPINEPHRINE [Concomitant]
     Active Substance: NOREPINEPHRINE
     Route: 042
     Dates: start: 20191009, end: 20191011
  60. PHENYLEPHRINE [Concomitant]
     Active Substance: PHENYLEPHRINE HYDROCHLORIDE
     Route: 042
     Dates: start: 20191009, end: 20191009
  61. MIDAZOLAM [Concomitant]
     Active Substance: MIDAZOLAM
     Indication: Sedation
     Route: 042
     Dates: start: 20191008, end: 20191008
  62. METHYLPREDNISOLONE SODIUM SUCCINATE [Concomitant]
     Active Substance: METHYLPREDNISOLONE SODIUM SUCCINATE
     Route: 042
     Dates: start: 20191008, end: 20191009
  63. AMIODARONE [Concomitant]
     Active Substance: AMIODARONE
     Indication: Tachycardia
     Route: 042
     Dates: start: 20191008, end: 20191009
  64. AMIODARONE [Concomitant]
     Active Substance: AMIODARONE
     Route: 042
     Dates: start: 20191008, end: 20191008
  65. HYDROCORTISONE [Concomitant]
     Active Substance: HYDROCORTISONE
     Indication: Proctalgia
     Route: 061
     Dates: start: 20191111
  66. TRAMADOL [Concomitant]
     Active Substance: TRAMADOL
     Indication: Proctalgia
     Route: 048
     Dates: start: 20191111
  67. CRYOPRECIPITATED ANTIHEMOPHILIC FACTOR (HUMAN) [Concomitant]
     Active Substance: CRYOPRECIPITATED ANTIHEMOPHILIC FACTOR (HUMAN)
     Indication: Hypofibrinogenaemia
     Dosage: 1 UNIT
     Route: 042
     Dates: start: 20191011
  68. PLATELETS [Concomitant]
     Active Substance: HUMAN PLATELET, ALLOGENIC
     Indication: Thrombocytopenia
     Route: 042
     Dates: start: 20191011
  69. PLATELETS [Concomitant]
     Active Substance: HUMAN PLATELET, ALLOGENIC
     Dosage: 2 UNIT
     Route: 042
     Dates: start: 20191220, end: 20191220
  70. PLATELETS [Concomitant]
     Active Substance: HUMAN PLATELET, ALLOGENIC
     Route: 042
     Dates: start: 20191011, end: 20191011
  71. PLATELETS [Concomitant]
     Active Substance: HUMAN PLATELET, ALLOGENIC
     Route: 042
     Dates: start: 20191012, end: 20191014
  72. PSYLLIUM [Concomitant]
     Active Substance: PLANTAGO SEED
     Indication: Constipation
     Route: 048
     Dates: start: 20191023
  73. DILTIAZEM [Concomitant]
     Active Substance: DILTIAZEM
     Indication: Anorectal infection
     Route: 061
     Dates: start: 20191023
  74. DILTIAZEM [Concomitant]
     Active Substance: DILTIAZEM
     Indication: Haemorrhoids
  75. AUGMENTIN [Concomitant]
     Active Substance: AMOXICILLIN\CLAVULANATE POTASSIUM
     Indication: Anorectal infection
     Dates: start: 20191028, end: 20191111
  76. ACETAMINOPHEN [Concomitant]
     Active Substance: ACETAMINOPHEN
     Indication: Pyrexia
     Route: 048
     Dates: start: 20191001, end: 20191008
  77. ACETAMINOPHEN [Concomitant]
     Active Substance: ACETAMINOPHEN
     Route: 048
     Dates: start: 20190923, end: 20190923
  78. ACETAMINOPHEN [Concomitant]
     Active Substance: ACETAMINOPHEN
     Route: 042
     Dates: start: 20191008, end: 20191009
  79. ACETAMINOPHEN [Concomitant]
     Active Substance: ACETAMINOPHEN
     Route: 048
     Dates: start: 20190917, end: 20190917
  80. ACETAMINOPHEN [Concomitant]
     Active Substance: ACETAMINOPHEN
     Route: 048
     Dates: start: 20191120, end: 20191120
  81. ACETAMINOPHEN [Concomitant]
     Active Substance: ACETAMINOPHEN
     Route: 048
     Dates: start: 20191204, end: 20191204
  82. ACETAMINOPHEN [Concomitant]
     Active Substance: ACETAMINOPHEN
     Route: 048
     Dates: start: 20191211, end: 20191211
  83. ACETAMINOPHEN [Concomitant]
     Active Substance: ACETAMINOPHEN
     Route: 048
     Dates: start: 20191218, end: 20191218
  84. ACETAMINOPHEN [Concomitant]
     Active Substance: ACETAMINOPHEN
     Route: 048
     Dates: start: 20191008, end: 20191008
  85. OXYGEN [Concomitant]
     Active Substance: OXYGEN
     Dates: start: 20191008
  86. OXYGEN [Concomitant]
     Active Substance: OXYGEN
     Dates: start: 20191011
  87. OXYGEN [Concomitant]
     Active Substance: OXYGEN
     Dates: start: 20191009
  88. OXYGEN [Concomitant]
     Active Substance: OXYGEN
     Dates: start: 20191009
  89. OXYGEN [Concomitant]
     Active Substance: OXYGEN
     Dates: start: 20191011
  90. OXYGEN [Concomitant]
     Active Substance: OXYGEN
     Dates: start: 20191010
  91. OXYGEN [Concomitant]
     Active Substance: OXYGEN
     Dates: start: 20191010
  92. OXYGEN [Concomitant]
     Active Substance: OXYGEN
     Dates: start: 20191009
  93. OXYGEN [Concomitant]
     Active Substance: OXYGEN
     Dates: start: 20191008
  94. OXYGEN [Concomitant]
     Active Substance: OXYGEN
     Dates: start: 20191010
  95. OXYGEN [Concomitant]
     Active Substance: OXYGEN
     Route: 045
     Dates: start: 20190916, end: 20190917
  96. WITCH HAZEL [Concomitant]
     Active Substance: WITCH HAZEL
     Indication: Haemorrhoids
     Route: 061
     Dates: start: 20191024

REACTIONS (4)
  - Cytokine release syndrome [Recovered/Resolved]
  - Tumour lysis syndrome [Recovered/Resolved]
  - Pyrexia [Recovered/Resolved]
  - Cytokine release syndrome [Recovered/Resolved]

NARRATIVE: CASE EVENT DATE: 20190916
